FAERS Safety Report 18174350 (Version 4)
Quarter: 2021Q2

REPORT INFORMATION
  Report Type: Spontaneous
  Country: US (occurrence: US)
  Receive Date: 20200820
  Receipt Date: 20210514
  Transmission Date: 20210717
  Serious: Yes (Death, Hospitalization, Other)
  Sender: FDA-Public Use
  Company Number: US-ASTRAZENECA-2018SF26109

PATIENT
  Age: 49 Year
  Sex: Male

DRUGS (47)
  1. TRAZODONE [Concomitant]
     Active Substance: TRAZODONE HYDROCHLORIDE
  2. AMITIZA [Concomitant]
     Active Substance: LUBIPROSTONE
  3. EMLA [Concomitant]
     Active Substance: LIDOCAINE\PRILOCAINE
  4. FLEXERIL [Concomitant]
     Active Substance: CYCLOBENZAPRINE HYDROCHLORIDE
  5. PROMETHAZINE HYDROCHLORIDE. [Concomitant]
     Active Substance: PROMETHAZINE HYDROCHLORIDE
  6. ULTRAM [Concomitant]
     Active Substance: TRAMADOL HYDROCHLORIDE
  7. LORAZEPAM. [Concomitant]
     Active Substance: LORAZEPAM
  8. TRILIPIX [Concomitant]
     Active Substance: FENOFIBRIC ACID
  9. ACETAMINOPHEN. [Concomitant]
     Active Substance: ACETAMINOPHEN
  10. MUCINEX [Concomitant]
     Active Substance: GUAIFENESIN
  11. PRILOSEC [Suspect]
     Active Substance: OMEPRAZOLE MAGNESIUM
     Indication: GASTROOESOPHAGEAL REFLUX DISEASE
     Dosage: DELAYED RELEASE40.0MG UNKNOWN
     Route: 048
  12. FUROSEMIDE. [Concomitant]
     Active Substance: FUROSEMIDE
  13. VERAPAMIL [Concomitant]
     Active Substance: VERAPAMIL HYDROCHLORIDE
  14. SIMVASTATIN. [Concomitant]
     Active Substance: SIMVASTATIN
  15. ALLOPURINOL. [Concomitant]
     Active Substance: ALLOPURINOL
  16. AMOXIL [Concomitant]
     Active Substance: AMOXICILLIN
  17. NEXIUM [Suspect]
     Active Substance: ESOMEPRAZOLE MAGNESIUM
     Route: 048
     Dates: start: 2004, end: 2014
  18. ADALAT [Concomitant]
     Active Substance: NIFEDIPINE
  19. NOVOLIN NOS [Concomitant]
     Active Substance: INSULIN HUMAN
  20. HYDROMET [Concomitant]
     Active Substance: HOMATROPINE METHYLBROMIDE\HYDROCODONE BITARTRATE
  21. VIIBRYD [Concomitant]
     Active Substance: VILAZODONE HYDROCHLORIDE
  22. PRILOSEC [Suspect]
     Active Substance: OMEPRAZOLE MAGNESIUM
     Indication: GASTROOESOPHAGEAL REFLUX DISEASE
     Route: 048
     Dates: start: 2004, end: 2014
  23. PRILOSEC [Suspect]
     Active Substance: OMEPRAZOLE MAGNESIUM
     Indication: GASTROOESOPHAGEAL REFLUX DISEASE
     Dosage: 40.0MG UNKNOWN
     Route: 048
     Dates: start: 2010, end: 2014
  24. ZAROXOLYN [Concomitant]
     Active Substance: METOLAZONE
  25. INSULIN [Concomitant]
     Active Substance: INSULIN NOS
  26. FLAGYL [Concomitant]
     Active Substance: METRONIDAZOLE\METRONIDAZOLE HYDROCHLORIDE
  27. PROMETHAZINE [Concomitant]
     Active Substance: PROMETHAZINE HYDROCHLORIDE
  28. OXYCODONE AND ACETAMINOPHEN [Concomitant]
     Active Substance: ACETAMINOPHEN\OXYCODONE HYDROCHLORIDE
  29. LIDOCAINE. [Concomitant]
     Active Substance: LIDOCAINE
  30. VICODIN [Concomitant]
     Active Substance: ACETAMINOPHEN\HYDROCODONE BITARTRATE
  31. COLCHICINE. [Concomitant]
     Active Substance: COLCHICINE
  32. XANAX [Concomitant]
     Active Substance: ALPRAZOLAM
  33. CIALIS [Concomitant]
     Active Substance: TADALAFIL
  34. PAXIL [Concomitant]
     Active Substance: PAROXETINE HYDROCHLORIDE
  35. MS CONTIN [Concomitant]
     Active Substance: MORPHINE SULFATE
  36. ASPIRIN. [Concomitant]
     Active Substance: ASPIRIN
  37. VALIUM [Concomitant]
     Active Substance: DIAZEPAM
  38. SODIUM CHLORIDE. [Concomitant]
     Active Substance: SODIUM CHLORIDE
  39. AMBIEN [Concomitant]
     Active Substance: ZOLPIDEM TARTRATE
  40. ROCEPHIN [Concomitant]
     Active Substance: CEFTRIAXONE SODIUM
  41. GABAPENTIN. [Concomitant]
     Active Substance: GABAPENTIN
  42. LISINOPRIL. [Concomitant]
     Active Substance: LISINOPRIL
  43. TRAMADOL. [Concomitant]
     Active Substance: TRAMADOL
  44. FLUTICASONE PROPIONATE. [Concomitant]
     Active Substance: FLUTICASONE PROPIONATE
  45. ALLEGRA [Concomitant]
     Active Substance: FEXOFENADINE HYDROCHLORIDE
  46. AUGMENTIN [Concomitant]
     Active Substance: AMOXICILLIN\CLAVULANATE POTASSIUM
  47. MEDROL [Concomitant]
     Active Substance: METHYLPREDNISOLONE

REACTIONS (7)
  - Renal failure [Unknown]
  - End stage renal disease [Unknown]
  - Chronic kidney disease [Unknown]
  - Sepsis [Fatal]
  - Acute kidney injury [Unknown]
  - Pneumonia aspiration [Fatal]
  - Nephropathy [Unknown]

NARRATIVE: CASE EVENT DATE: 2008
